FAERS Safety Report 8689767 (Version 5)
Quarter: 2017Q1

REPORT INFORMATION
  Report Type: Spontaneous
  Country: US (occurrence: US)
  Receive Date: 20120727
  Receipt Date: 20170207
  Transmission Date: 20170429
  Serious: Yes (Other)
  Sender: FDA-Public Use
  Company Number: US-ASTRAZENECA-2012SE08368

PATIENT
  Age: 570 Month
  Sex: Female
  Weight: 48.1 kg

DRUGS (12)
  1. SEROQUEL XR [Suspect]
     Active Substance: QUETIAPINE FUMARATE
     Indication: NERVOUSNESS
     Dosage: 50.0MG UNKNOWN
     Route: 048
  2. SEROQUEL XR [Suspect]
     Active Substance: QUETIAPINE FUMARATE
     Indication: MAJOR DEPRESSION
     Dosage: 50.0MG UNKNOWN
     Route: 048
  3. SEROQUEL XR [Suspect]
     Active Substance: QUETIAPINE FUMARATE
     Indication: NERVOUSNESS
     Dosage: SEROQUEL XR 400 FROM A NEIGHBOR AND CUTTING THEM IN HALF UNKNOWN
     Route: 048
  4. ZOLOFT [Concomitant]
     Active Substance: SERTRALINE HYDROCHLORIDE
     Indication: DEPRESSION
     Route: 048
     Dates: start: 2016
  5. SEROQUEL XR [Suspect]
     Active Substance: QUETIAPINE FUMARATE
     Indication: MAJOR DEPRESSION
     Dosage: BORROWING HER MOTHERS 25MG SEROQUEL PILLS UNKNOWN
     Route: 048
  6. SEROQUEL XR [Suspect]
     Active Substance: QUETIAPINE FUMARATE
     Indication: NERVOUSNESS
     Route: 048
  7. NORCO [Concomitant]
     Active Substance: ACETAMINOPHEN\HYDROCODONE BITARTRATE
     Indication: PAIN
     Dosage: 10/325; DAILY
  8. ZOLOFT [Concomitant]
     Active Substance: SERTRALINE HYDROCHLORIDE
     Indication: ANXIETY
     Route: 048
     Dates: start: 2016
  9. ABREVA [Concomitant]
     Active Substance: DOCOSANOL
  10. SEROQUEL XR [Suspect]
     Active Substance: QUETIAPINE FUMARATE
     Indication: MAJOR DEPRESSION
     Route: 048
  11. SEROQUEL XR [Suspect]
     Active Substance: QUETIAPINE FUMARATE
     Indication: MAJOR DEPRESSION
     Dosage: SEROQUEL XR 400 FROM A NEIGHBOR AND CUTTING THEM IN HALF UNKNOWN
     Route: 048
  12. SEROQUEL XR [Suspect]
     Active Substance: QUETIAPINE FUMARATE
     Indication: NERVOUSNESS
     Dosage: BORROWING HER MOTHERS 25MG SEROQUEL PILLS UNKNOWN
     Route: 048

REACTIONS (17)
  - Joint injury [Unknown]
  - Malaise [Unknown]
  - Oral pain [Unknown]
  - Insomnia [Not Recovered/Not Resolved]
  - Drug dose omission [Unknown]
  - Panic attack [Unknown]
  - Dental caries [Unknown]
  - Agitation [Unknown]
  - Back pain [Unknown]
  - Weight increased [Unknown]
  - Off label use [Unknown]
  - Exaggerated startle response [Unknown]
  - Daydreaming [Unknown]
  - Intentional product use issue [Unknown]
  - Product use issue [Unknown]
  - Drug effect incomplete [Unknown]
  - Intentional product misuse [Unknown]

NARRATIVE: CASE EVENT DATE: 201212
